FAERS Safety Report 17168654 (Version 1)
Quarter: 2019Q4

REPORT INFORMATION
  Report Type: Spontaneous
  Country: FR (occurrence: FR)
  Receive Date: 20191218
  Receipt Date: 20191218
  Transmission Date: 20200122
  Serious: Yes (Death)
  Sender: FDA-Public Use
  Company Number: FR-ORION CORPORATION ORION PHARMA-19_00007813

PATIENT
  Age: 69 Year
  Sex: Female
  Weight: 103 kg

DRUGS (17)
  1. ALPRAZOLAM MYLAN [Concomitant]
     Active Substance: ALPRAZOLAM
     Dosage: STRENGTH- 0.50 MG, IF NECESSARY
     Route: 065
  2. PRIMPERAN [Concomitant]
     Active Substance: METOCLOPRAMIDE HYDROCHLORIDE
     Dosage: STRENGTH-10 MG
     Route: 065
  3. LEVOTHYROX [Concomitant]
     Active Substance: LEVOTHYROXINE
     Dosage: STRENGTH-100 UG, EVERY MONDAY, TUESDAY, THURSDAY, FRIDAY, SATURDAY, 100 UG
     Route: 048
  4. CONTRAMAL [Concomitant]
     Active Substance: TRAMADOL HYDROCHLORIDE
     Dosage: STRENGTH-50MG
     Route: 065
  5. STILNOX [Concomitant]
     Active Substance: ZOLPIDEM TARTRATE
     Dosage: STRENGTH- 10MG
     Route: 065
  6. GLICLAZIDE MYLAN [Concomitant]
     Active Substance: GLICLAZIDE
     Dosage: STRENGTH-30MG
     Route: 065
  7. METHOTREXATE (TRADE NAME UNKNOWN) [Suspect]
     Active Substance: METHOTREXATE
     Indication: RHEUMATOID ARTHRITIS
     Route: 048
  8. ARAVA [Suspect]
     Active Substance: LEFLUNOMIDE
     Indication: RHEUMATOID ARTHRITIS
     Route: 048
     Dates: start: 2009, end: 2013
  9. ORENCIA [Suspect]
     Active Substance: ABATACEPT
     Indication: RHEUMATOID ARTHRITIS
     Route: 041
     Dates: start: 2014, end: 201606
  10. ZAMUDOL L.P [Concomitant]
     Indication: PAIN
     Dosage: STRENGTH: 150 MG; WITH CONTRAMAL 50 MG 2 / D IF PAIN
     Route: 065
  11. LEVOTHYROX [Concomitant]
     Active Substance: LEVOTHYROXINE
     Dosage: STRENGTH-125 UG, EVERY WEDNESDAY, SUNDAY 125 UG
     Route: 048
  12. OMEPRAZOLE ARROW GENERIQUES [Concomitant]
     Dosage: STRENGTH-20 MG
     Route: 048
  13. CRESTOR [Concomitant]
     Active Substance: ROSUVASTATIN CALCIUM
     Dosage: STRENGTH-5MG
     Route: 048
  14. ZYMAD [Concomitant]
     Active Substance: CHOLECALCIFEROL
     Dosage: STRENGTH-80 000 UI
     Route: 048
  15. ROACTEMRA [Suspect]
     Active Substance: TOCILIZUMAB
     Indication: RHEUMATOID ARTHRITIS
     Route: 041
     Dates: start: 2017
  16. HUMIRA [Suspect]
     Active Substance: ADALIMUMAB
     Indication: RHEUMATOID ARTHRITIS
     Route: 041
     Dates: start: 2013, end: 2014
  17. DOLIPRANE [Concomitant]
     Active Substance: ACETAMINOPHEN
     Dosage: STRENGTH-1000 MG, IF NECESSARY
     Route: 048

REACTIONS (1)
  - Malignant melanoma [Fatal]

NARRATIVE: CASE EVENT DATE: 20190822
